FAERS Safety Report 4654464-9 (Version None)
Quarter: 2005Q2

REPORT INFORMATION
  Report Type: 
  Country: None (occurrence: None)
  Receive Date: 20050505
  Receipt Date: 20050505
  Transmission Date: 20051028
  Serious: No
  Sender: FDA-Public Use
  Company Number: None

PATIENT
  Sex: Female

DRUGS (2)
  1. THYODINE [Suspect]
     Indication: HYPOTHYROIDISM
     Dosage: 1 TABLET DAILY
     Dates: start: 20040301, end: 20050301
  2. SYNTHROID [Suspect]

REACTIONS (5)
  - BLOOD THYROID STIMULATING HORMONE DECREASED [None]
  - BLOOD THYROID STIMULATING HORMONE INCREASED [None]
  - DRUG DISPENSING ERROR [None]
  - PHARMACEUTICAL PRODUCT COMPLAINT [None]
  - THYROXINE DECREASED [None]
